FAERS Safety Report 10271465 (Version 1)
Quarter: 2014Q3

REPORT INFORMATION
  Report Type: Spontaneous
  Country: DE (occurrence: DE)
  Receive Date: 20140701
  Receipt Date: 20140701
  Transmission Date: 20150326
  Serious: Yes (Death, Congenital Anomaly, Other)
  Sender: FDA-Public Use
  Company Number: DE-TEVA-490333GER

PATIENT
  Age: 1 Day
  Sex: Male
  Weight: 2.24 kg

DRUGS (4)
  1. RAMIPRIL. [Suspect]
     Active Substance: RAMIPRIL
     Route: 064
  2. VALDOXAN [Suspect]
     Active Substance: AGOMELATINE
     Route: 064
  3. CELESTAN [Concomitant]
     Active Substance: BETAMETHASONE
     Route: 064
  4. HCT [Suspect]
     Active Substance: HYDROCHLOROTHIAZIDE
     Route: 064

REACTIONS (11)
  - Laryngeal cleft [Fatal]
  - Congenital pulmonary hypertension [Not Recovered/Not Resolved]
  - Congenital diaphragmatic hernia [Not Recovered/Not Resolved]
  - Cryptorchism [Not Recovered/Not Resolved]
  - Dextrocardia [Not Recovered/Not Resolved]
  - Cerebral calcification [Not Recovered/Not Resolved]
  - Neonatal respiratory distress syndrome [Not Recovered/Not Resolved]
  - Meningomyelocele [Not Recovered/Not Resolved]
  - Patent ductus arteriosus [Not Recovered/Not Resolved]
  - Foetal exposure during pregnancy [Unknown]
  - Spina bifida [Not Recovered/Not Resolved]

NARRATIVE: CASE EVENT DATE: 20140123
